FAERS Safety Report 6159628-3 (Version None)
Quarter: 2009Q2

REPORT INFORMATION
  Report Type: 
  Country: None (occurrence: None)
  Receive Date: 20090420
  Receipt Date: 20090409
  Transmission Date: 20091009
  Serious: Yes (Hospitalization)
  Sender: FDA-Public Use
  Company Number: JP-JNJFOC-20090106344

PATIENT
  Sex: Female
  Weight: 48 kg

DRUGS (12)
  1. RISPERDAL [Suspect]
     Route: 048
  2. RISPERDAL [Suspect]
     Route: 048
  3. RISPERDAL [Suspect]
     Indication: SCHIZOPHRENIA, PARANOID TYPE
     Route: 048
  4. RISPERDAL [Suspect]
     Route: 048
  5. RISPERDAL [Suspect]
     Route: 048
  6. OXYBUTYNIN CHLORIDE [Concomitant]
     Route: 048
  7. SLOWHEIM [Concomitant]
     Indication: INSOMNIA
     Route: 048
  8. SENNARIDE [Concomitant]
     Indication: CONSTIPATION
     Route: 048
  9. BIPERIDEN HYDROCHLORIDE TAB [Concomitant]
     Indication: SALIVARY HYPERSECRETION
     Route: 048
  10. CYSVON [Concomitant]
     Route: 048
  11. ALOTEC [Concomitant]
     Route: 048
  12. SENNARIDE [Concomitant]
     Route: 048

REACTIONS (3)
  - URINARY RETENTION [None]
  - URINARY TRACT INFECTION [None]
  - WHITE BLOOD CELL COUNT DECREASED [None]
